FAERS Safety Report 8016645-6 (Version None)
Quarter: 2012Q1

REPORT INFORMATION
  Report Type: 
  Country: None (occurrence: None)
  Receive Date: 20120102
  Receipt Date: 20111218
  Transmission Date: 20120608
  Serious: Yes (Hospitalization, Other)
  Sender: FDA-Public Use
  Company Number: PT-AMGEN-PRTSP2011039701

PATIENT
  Age: 46 Year
  Sex: Male

DRUGS (8)
  1. HUMIRA [Suspect]
     Indication: SPONDYLOARTHROPATHY
     Dosage: 40 MG, EVERY 2 WEEKS
     Dates: start: 20101201, end: 20110301
  2. GOLIMUMAB [Suspect]
     Indication: SPONDYLOARTHROPATHY
     Dosage: 50 MG, MONTHLY
     Dates: start: 20110501, end: 20110713
  3. VOLTAREN [Concomitant]
     Dosage: UNK
  4. ENBREL [Suspect]
     Indication: PSORIASIS
     Dosage: UNK
     Dates: start: 20060101, end: 20101001
  5. GOLIMUMAB [Suspect]
     Indication: PSORIASIS
  6. ALLOPURINOL [Concomitant]
     Dosage: UNK
  7. ALLOPURINOL [Concomitant]
     Dosage: UNK
  8. HUMIRA [Suspect]
     Indication: PSORIASIS

REACTIONS (3)
  - DRUG INEFFECTIVE [None]
  - SPONDYLOARTHROPATHY [None]
  - DEMYELINATION [None]
